FAERS Safety Report 12233280 (Version 2)
Quarter: 2016Q3

REPORT INFORMATION
  Report Type: Report from Study
  Country: ID (occurrence: ID)
  Receive Date: 20160404
  Receipt Date: 20160718
  Transmission Date: 20161109
  Serious: Yes (Death, Hospitalization, Other)
  Sender: FDA-Public Use
  Company Number: ID-ROCHE-1680079

PATIENT
  Age: 48 Year
  Sex: Male

DRUGS (2)
  1. MABTHERA [Suspect]
     Active Substance: RITUXIMAB
     Indication: DIFFUSE LARGE B-CELL LYMPHOMA
     Route: 065
     Dates: start: 2015
  2. VINCRISTINE [Suspect]
     Active Substance: VINCRISTINE
     Indication: PRODUCT USED FOR UNKNOWN INDICATION
     Route: 065

REACTIONS (11)
  - Drug ineffective [Unknown]
  - Decreased appetite [Unknown]
  - General physical health deterioration [Fatal]
  - General physical health deterioration [Recovered/Resolved]
  - Hepatitis B [Fatal]
  - Chills [Recovered/Resolved]
  - Vomiting [Unknown]
  - Oedema [Unknown]
  - Anaemia [Not Recovered/Not Resolved]
  - Seizure [Recovered/Resolved]
  - Thrombocytopenia [Not Recovered/Not Resolved]

NARRATIVE: CASE EVENT DATE: 201602
